FAERS Safety Report 17767906 (Version 2)
Quarter: 2020Q2

REPORT INFORMATION
  Report Type: Report from Study
  Country: US (occurrence: US)
  Receive Date: 20200511
  Receipt Date: 20200603
  Transmission Date: 20200714
  Serious: Yes (Other)
  Sender: FDA-Public Use
  Company Number: US-ACTELION-A-US2020-205051

PATIENT
  Age: 40 Year
  Sex: Female
  Weight: 117.91 kg

DRUGS (2)
  1. OPSUMIT [Suspect]
     Active Substance: MACITENTAN
     Indication: PULMONARY ARTERIAL HYPERTENSION
     Dosage: 10 MG, QD
     Route: 048
  2. REMODULIN [Suspect]
     Active Substance: TREPROSTINIL
     Indication: PRODUCT USED FOR UNKNOWN INDICATION
     Route: 065

REACTIONS (13)
  - Nausea [Unknown]
  - Weight decreased [Unknown]
  - Administration site reaction [Unknown]
  - Diarrhoea [Unknown]
  - Hypotension [Unknown]
  - Peripheral swelling [Unknown]
  - Dizziness [Unknown]
  - Fractured sacrum [Unknown]
  - Syncope [Unknown]
  - Rash [Unknown]
  - Sensitive skin [Unknown]
  - Pelvic fracture [Unknown]
  - Amnesia [Unknown]

NARRATIVE: CASE EVENT DATE: 202004
